FAERS Safety Report 7479401-3 (Version None)
Quarter: 2011Q2

REPORT INFORMATION
  Report Type: 
  Country: None (occurrence: None)
  Receive Date: 20110513
  Receipt Date: 20110503
  Transmission Date: 20111010
  Serious: Yes (Hospitalization)
  Sender: FDA-Public Use
  Company Number: CA-PFIZER INC-2009223233

PATIENT
  Age: 72 Year
  Sex: Male
  Weight: 72 kg

DRUGS (15)
  1. BLINDED NO SUBJECT DRUG [Suspect]
     Indication: PROSTATE CANCER
     Dosage: 37.5 MG, 1X/DAY
     Route: 048
     Dates: start: 20090117, end: 20090306
  2. SUPEUDOL [Concomitant]
     Indication: PAIN
     Dosage: UNK
  3. ZOMETA [Concomitant]
     Indication: PROPHYLAXIS
     Dosage: UNK
  4. STEMETIL ^AVENTIS PHARMA^ [Concomitant]
     Indication: ANTIEMETIC SUPPORTIVE CARE
     Dosage: UNK
  5. CLONAZEPAM [Concomitant]
     Indication: ANXIOLYTIC THERAPY
     Dosage: UNK
  6. DESYREL [Concomitant]
     Indication: SEDATIVE THERAPY
     Dosage: UNK
  7. ASPIRIN [Concomitant]
     Indication: ANTICOAGULANT THERAPY
     Dosage: UNK
  8. SUNITINIB MALATE [Suspect]
     Indication: PROSTATE CANCER
     Dosage: 37.5 MG, 1X/DAY
     Route: 048
     Dates: start: 20090117, end: 20090306
  9. PREDNISONE [Suspect]
     Indication: PROSTATE CANCER
     Dosage: 5 MG, 2X/DAY
     Route: 048
     Dates: start: 20090117, end: 20090306
  10. HYDROCHLOROTHIAZIDE [Concomitant]
     Indication: DIURETIC THERAPY
     Dosage: UNK
  11. CRESTOR [Concomitant]
     Indication: HYPERCHOLESTEROLAEMIA
     Dosage: UNK
  12. ZOLADEX [Concomitant]
     Indication: HORMONE THERAPY
     Dosage: UNK
  13. PLACEBO [Suspect]
     Indication: PROSTATE CANCER
     Dosage: 37.5 MG, 1X/DAY
     Route: 048
     Dates: start: 20090117, end: 20090306
  14. COLACE [Concomitant]
     Indication: DIARRHOEA
     Dosage: UNK
  15. EFFEXOR XR [Concomitant]
     Indication: HOT FLUSH
     Dosage: UNK

REACTIONS (2)
  - DUODENITIS [None]
  - OESOPHAGITIS [None]
